FAERS Safety Report 7671532-8 (Version None)
Quarter: 2011Q3

REPORT INFORMATION
  Report Type: 
  Country: None (occurrence: None)
  Receive Date: 20110809
  Receipt Date: 20110809
  Transmission Date: 20111222
  Serious: Yes (Hospitalization)
  Sender: FDA-Public Use
  Company Number: None

PATIENT
  Age: 87 Year
  Sex: Male
  Weight: 86.8 kg

DRUGS (11)
  1. ATENOLOL [Concomitant]
     Route: 048
  2. MIRALAX [Concomitant]
     Route: 048
  3. VITAMIN B-12 [Concomitant]
     Route: 048
  4. ALLOPURINOL [Concomitant]
     Route: 048
  5. TERAZOSIIN [Concomitant]
     Route: 048
  6. VITAMIN B3 [Concomitant]
     Route: 042
  7. PRADAXA [Suspect]
     Dosage: 75 MG
     Route: 048
  8. TAMSULOSIN HCL [Concomitant]
  9. LASIX [Concomitant]
     Route: 048
  10. PRADAXA [Concomitant]
     Route: 048
  11. TYLENOL-500 [Concomitant]
     Route: 048

REACTIONS (3)
  - FALL [None]
  - PENILE HAEMORRHAGE [None]
  - CATHETER SITE HAEMORRHAGE [None]
